FAERS Safety Report 8209209-2 (Version None)
Quarter: 2012Q1

REPORT INFORMATION
  Report Type: 
  Country: None (occurrence: None)
  Receive Date: 20120314
  Receipt Date: 20120309
  Transmission Date: 20120608
  Serious: Yes (Death)
  Sender: FDA-Public Use
  Company Number: PHHY2012CN021705

PATIENT
  Age: 67 Year
  Sex: Male

DRUGS (4)
  1. CISPLATIN [Suspect]
     Indication: SQUAMOUS CELL CARCINOMA
  2. CETUXIMAB [Concomitant]
  3. CETUXIMAB [Concomitant]
     Indication: SQUAMOUS CELL CARCINOMA
     Route: 042
  4. VINORELBINE [Suspect]
     Indication: SQUAMOUS CELL CARCINOMA

REACTIONS (3)
  - NEUTROPENIA [None]
  - DEATH [None]
  - HEPATIC FUNCTION ABNORMAL [None]
